FAERS Safety Report 16252746 (Version 1)
Quarter: 2019Q2

REPORT INFORMATION
  Report Type: Spontaneous
  Country: CN (occurrence: CN)
  Receive Date: 20190429
  Receipt Date: 20190429
  Transmission Date: 20190711
  Serious: Yes (Other)
  Sender: FDA-Public Use
  Company Number: CN-JNJFOC-20190431136

PATIENT
  Age: 4 Decade
  Sex: Female
  Weight: 60 kg

DRUGS (1)
  1. SPORANOX [Suspect]
     Active Substance: ITRACONAZOLE
     Indication: DERMATOPHYTOSIS OF NAIL
     Route: 048

REACTIONS (3)
  - Renal injury [Unknown]
  - Liver injury [Unknown]
  - Hair colour changes [Unknown]

NARRATIVE: CASE EVENT DATE: 2018
